FAERS Safety Report 15404761 (Version 3)
Quarter: 2018Q4

REPORT INFORMATION
  Report Type: Spontaneous
  Country: US (occurrence: US)
  Receive Date: 20180919
  Receipt Date: 20181204
  Transmission Date: 20190204
  Serious: No
  Sender: FDA-Public Use
  Company Number: US-SA-2018SA261511

PATIENT
  Age: 73 Year
  Sex: Female

DRUGS (14)
  1. PRALUENT [Suspect]
     Active Substance: ALIROCUMAB
     Indication: HYPERLIPIDAEMIA
  2. ROSUVASTATIN CALCIUM. [Concomitant]
     Active Substance: ROSUVASTATIN CALCIUM
  3. POLYETHYLENE GLYCOL [Concomitant]
     Active Substance: POLYETHYLENE GLYCOLS
  4. ALPRAZOLAM. [Concomitant]
     Active Substance: ALPRAZOLAM
  5. EZETIMIBE. [Concomitant]
     Active Substance: EZETIMIBE
  6. VERAPAMIL [Concomitant]
     Active Substance: VERAPAMIL HYDROCHLORIDE
  7. SUPREP BOWEL PREP [Concomitant]
     Active Substance: MAGNESIUM SULFATE\POTASSIUM SULFATE\SODIUM SULFATE
  8. BETHANECHOL CHLORIDE. [Concomitant]
     Active Substance: BETHANECHOL CHLORIDE
  9. NYSTATIN AND TRIAMCINOLONE [Concomitant]
     Active Substance: NYSTATIN\TRIAMCINOLONE ACETONIDE
  10. POTASSIUM CHLORIDE. [Concomitant]
     Active Substance: POTASSIUM CHLORIDE
  11. OMEPRAZOLE. [Concomitant]
     Active Substance: OMEPRAZOLE
  12. VITAMIN D3 [Concomitant]
     Active Substance: CHOLECALCIFEROL
  13. CHLORTHALIDONE. [Concomitant]
     Active Substance: CHLORTHALIDONE
  14. PRALUENT [Suspect]
     Active Substance: ALIROCUMAB
     Indication: DISEASE RISK FACTOR
     Dosage: 150 MG, QOW
     Route: 058
     Dates: start: 201807

REACTIONS (2)
  - Injection site rash [Unknown]
  - Injection site bruising [Unknown]

NARRATIVE: CASE EVENT DATE: 2018
